FAERS Safety Report 18660364 (Version 1)
Quarter: 2020Q4

REPORT INFORMATION
  Report Type: Spontaneous
  Country: US (occurrence: US)
  Receive Date: 20201224
  Receipt Date: 20201224
  Transmission Date: 20210114
  Serious: No
  Sender: FDA-Public Use
  Company Number: US-009507513-2012USA007119

PATIENT
  Sex: Female

DRUGS (21)
  1. TYVASO [Suspect]
     Active Substance: TREPROSTINIL
     Dosage: 54 MICROGRAM (9 BREATH) FOUR TIMES A DAY (QID)
     Dates: end: 2020
  2. TYVASO [Suspect]
     Active Substance: TREPROSTINIL
     Dosage: 36 MICROGRAM (6 BREATH) FOR 2 WEEK
     Dates: start: 2020
  3. FUROSEMIDE. [Concomitant]
     Active Substance: FUROSEMIDE
  4. DULOXETINE HYDROCHLORIDE. [Concomitant]
     Active Substance: DULOXETINE HYDROCHLORIDE
  5. GABAPENTIN. [Concomitant]
     Active Substance: GABAPENTIN
  6. INCRUSE ELLIPTA [Concomitant]
     Active Substance: UMECLIDINIUM BROMIDE
  7. TYLENOL [Concomitant]
     Active Substance: ACETAMINOPHEN
  8. CARVEDILOL. [Suspect]
     Active Substance: CARVEDILOL
     Indication: PRODUCT USED FOR UNKNOWN INDICATION
     Dosage: UNK
  9. ADVAIR HFA [Concomitant]
     Active Substance: FLUTICASONE PROPIONATE\SALMETEROL XINAFOATE
  10. ALBUTEROL. [Concomitant]
     Active Substance: ALBUTEROL
  11. METFORMIN [Concomitant]
     Active Substance: METFORMIN HYDROCHLORIDE
  12. AMITRIPTYLIN [Concomitant]
     Active Substance: AMITRIPTYLINE
  13. TYVASO [Suspect]
     Active Substance: TREPROSTINIL
     Indication: PULMONARY ARTERIAL HYPERTENSION
     Dosage: CONCENTRATION: 0.6 MG/ML;
     Dates: start: 20200903
  14. PREDNISONE. [Concomitant]
     Active Substance: PREDNISONE
  15. ATORVASTATIN [Concomitant]
     Active Substance: ATORVASTATIN
  16. VITAMIN D (UNSPECIFIED) [Concomitant]
     Active Substance: VITAMIN D NOS
  17. SILDENAFIL CITRATE. [Concomitant]
     Active Substance: SILDENAFIL CITRATE
  18. COZAAR [Suspect]
     Active Substance: LOSARTAN POTASSIUM
     Indication: PRODUCT USED FOR UNKNOWN INDICATION
     Dosage: UNK
     Route: 048
  19. ASPIRIN. [Concomitant]
     Active Substance: ASPIRIN
  20. FISH OIL [Concomitant]
     Active Substance: FISH OIL
  21. POTASSIUM (UNSPECIFIED) [Concomitant]
     Active Substance: POTASSIUM

REACTIONS (4)
  - Hypotension [Unknown]
  - Dizziness [Recovered/Resolved]
  - Headache [Recovered/Resolved]
  - Feeling abnormal [Recovered/Resolved]

NARRATIVE: CASE EVENT DATE: 2020
